FAERS Safety Report 8582678-4 (Version None)
Quarter: 2012Q3

REPORT INFORMATION
  Report Type: 
  Country: None (occurrence: None)
  Receive Date: 20120809
  Receipt Date: 20120808
  Transmission Date: 20120928
  Serious: Yes (Death)
  Sender: FDA-Public Use
  Company Number: LB-ROCHE-1099430

PATIENT
  Age: 87 Year
  Sex: Female
  Weight: 74 kg

DRUGS (3)
  1. XELODA [Suspect]
     Indication: COLON CANCER
     Route: 048
     Dates: start: 20110620, end: 20110921
  2. AVASTIN [Suspect]
     Indication: COLORECTAL CANCER METASTATIC
     Route: 041
     Dates: start: 20110620, end: 20111024
  3. ELOXATIN [Concomitant]
     Indication: COLON CANCER
     Route: 041
     Dates: start: 20110620, end: 20111024

REACTIONS (1)
  - DISEASE PROGRESSION [None]
